FAERS Safety Report 12449514 (Version 1)
Quarter: 2016Q2

REPORT INFORMATION
  Report Type: Spontaneous
  Country: IE (occurrence: IE)
  Receive Date: 20160608
  Receipt Date: 20160608
  Transmission Date: 20160815
  Serious: Yes (Life-Threatening, Other)
  Sender: FDA-Public Use
  Company Number: IE-AMGEN-IRLSP2016073328

PATIENT
  Age: 13 Year
  Sex: Male

DRUGS (1)
  1. ENBREL [Suspect]
     Active Substance: ETANERCEPT
     Indication: JUVENILE IDIOPATHIC ARTHRITIS
     Dosage: 50 MG, BID
     Route: 030
     Dates: start: 20120518, end: 20130518

REACTIONS (11)
  - Fall [Unknown]
  - Head injury [Unknown]
  - Overdose [Unknown]
  - Dizziness [Unknown]
  - Syncope [Unknown]
  - Blood iron decreased [Unknown]
  - Headache [Unknown]
  - Skin abrasion [Unknown]
  - Drug dispensing error [Unknown]
  - Haemoglobin decreased [Unknown]
  - Lower respiratory tract infection [Unknown]
